FAERS Safety Report 20173954 (Version 1)
Quarter: 2021Q4

REPORT INFORMATION
  Report Type: Spontaneous
  Country: US (occurrence: US)
  Receive Date: 20211213
  Receipt Date: 20211213
  Transmission Date: 20220304
  Serious: No
  Sender: FDA-Public Use
  Company Number: US-MTPC-MTDA2021-0030550

PATIENT

DRUGS (1)
  1. RADICAVA [Suspect]
     Active Substance: EDARAVONE
     Indication: Product used for unknown indication
     Dosage: UNKNOWN
     Route: 065

REACTIONS (5)
  - Fatigue [Recovering/Resolving]
  - Asthenia [Recovering/Resolving]
  - Speech disorder [Unknown]
  - Balance disorder [Unknown]
  - Malaise [Unknown]
